FAERS Safety Report 5420065-8 (Version None)
Quarter: 2007Q3

REPORT INFORMATION
  Report Type: 
  Country: None (occurrence: None)
  Receive Date: 20070820
  Receipt Date: 20070808
  Transmission Date: 20080115
  Serious: Yes (Hospitalization)
  Sender: FDA-Public Use
  Company Number: BR-PFIZER INC-2007066348

PATIENT
  Sex: Male

DRUGS (3)
  1. DIABINESE [Suspect]
     Indication: DIABETES MELLITUS
     Route: 048
  2. ATENOLOL [Suspect]
     Route: 048
  3. AAS [Suspect]
     Route: 048
     Dates: start: 19950101

REACTIONS (4)
  - FALL [None]
  - LACERATION [None]
  - VASCULAR GRAFT [None]
  - WOUND [None]
